APPROVED DRUG PRODUCT: KYNMOBI
Active Ingredient: APOMORPHINE HYDROCHLORIDE
Strength: 25MG
Dosage Form/Route: FILM;SUBLINGUAL
Application: N210875 | Product #004
Applicant: SUMITOMO PHARMA AMERICA INC
Approved: May 21, 2020 | RLD: Yes | RS: No | Type: DISCN

PATENTS:
Patent 11419769 | Expires: Dec 16, 2031
Patent 8414922 | Expires: Dec 16, 2031
Patent 9669021 | Expires: Jun 11, 2030
Patent 10449146 | Expires: Apr 19, 2036
Patent 9326981 | Expires: Jun 11, 2030
Patent 9283219 | Expires: Jun 11, 2030
Patent 10420763 | Expires: Jun 11, 2030
Patent 9669019 | Expires: Jun 11, 2030
Patent 8846074 | Expires: Dec 16, 2031
Patent 10959943 | Expires: Apr 19, 2036
Patent 9044475 | Expires: Jun 11, 2030
Patent 10821074 | Expires: Aug 7, 2029